FAERS Safety Report 25140441 (Version 1)
Quarter: 2025Q1

REPORT INFORMATION
  Report Type: Spontaneous
  Country: US (occurrence: US)
  Receive Date: 20250331
  Receipt Date: 20250331
  Transmission Date: 20250408
  Serious: No
  Sender: TAKEDA
  Company Number: US-TAKEDA-2025TUS028986

PATIENT
  Age: 67 Year
  Sex: Female
  Weight: 64 kg

DRUGS (10)
  1. MOTEGRITY [Suspect]
     Active Substance: PRUCALOPRIDE SUCCINATE
     Indication: Constipation
     Dosage: 2 MILLIGRAM, QD
     Dates: start: 20250316
  2. FISH OIL [Concomitant]
     Active Substance: FISH OIL
  3. TYLENOL [Concomitant]
     Active Substance: ACETAMINOPHEN
     Indication: Headache
  4. VITAMIN D [Concomitant]
     Active Substance: VITAMIN D NOS
  5. CETIRIZINE HYDROCHLORIDE [Concomitant]
     Active Substance: CETIRIZINE HYDROCHLORIDE
  6. VITAMIN E [Concomitant]
     Active Substance: .ALPHA.-TOCOPHEROL
  7. VITAMIN B [Concomitant]
     Active Substance: VITAMIN B
  8. PANTOPRAZOLE [Concomitant]
     Active Substance: PANTOPRAZOLE
  9. VALTREX [Concomitant]
     Active Substance: VALACYCLOVIR HYDROCHLORIDE
  10. Dulcolax [Concomitant]

REACTIONS (4)
  - Head discomfort [Unknown]
  - Insomnia [Unknown]
  - Dental discomfort [Unknown]
  - Headache [Unknown]
